FAERS Safety Report 12433308 (Version 1)
Quarter: 2016Q2

REPORT INFORMATION
  Report Type: Spontaneous
  Country: US (occurrence: US)
  Receive Date: 20160603
  Receipt Date: 20160603
  Transmission Date: 20160815
  Serious: No
  Sender: FDA-Public Use
  Company Number: US-ACTAVIS-2015-12417

PATIENT
  Age: 72 Year
  Sex: Female

DRUGS (3)
  1. METOPROLOL (WATSON LABORATORIES) [Concomitant]
     Active Substance: METOPROLOL
     Indication: CARDIAC DISORDER
     Route: 065
  2. PRAVASTATIN SODIUM (WATSON LABORATORIES) [Concomitant]
     Active Substance: PRAVASTATIN SODIUM
     Indication: HYPERLIPIDAEMIA
     Route: 065
  3. DILTIAZEM (WATSON LABORATORIES) [Suspect]
     Active Substance: DILTIAZEM
     Indication: CARDIAC DISORDER
     Dosage: 240 MG, DAILY
     Route: 048
     Dates: start: 201505

REACTIONS (3)
  - Product odour abnormal [Recovered/Resolved]
  - Nausea [Recovered/Resolved]
  - Eructation [Recovered/Resolved]
